FAERS Safety Report 19727231 (Version 1)
Quarter: 2021Q3

REPORT INFORMATION
  Report Type: Spontaneous
  Country: US (occurrence: US)
  Receive Date: 20210820
  Receipt Date: 20210820
  Transmission Date: 20211014
  Serious: Yes (Other)
  Sender: FDA-Public Use
  Company Number: US-GLAXOSMITHKLINE-US2021GSK174216

PATIENT
  Sex: Female

DRUGS (16)
  1. ZANTAC [Suspect]
     Active Substance: RANITIDINE HYDROCHLORIDE
     Indication: LACTOSE INTOLERANCE
  2. RANITIDINE. [Suspect]
     Active Substance: RANITIDINE
     Indication: DYSPEPSIA
     Dosage: 150 MG, 1 OR 2 TIMES DAILY AS NEEDED FROM 1/2000?2/2010 AND THEN 4/2019 ? 4/2020
     Route: 065
     Dates: start: 200001, end: 202004
  3. ZANTAC [Suspect]
     Active Substance: RANITIDINE HYDROCHLORIDE
     Indication: LACTOSE INTOLERANCE
  4. ZANTAC [Suspect]
     Active Substance: RANITIDINE HYDROCHLORIDE
     Indication: DYSPEPSIA
     Dosage: 150 MG, 1 OR 2 TIMES DAILY AS NEEDED FROM 1/2000?2/2010 AND THEN 4/2019 ? 4/2020
     Route: 065
     Dates: start: 200001, end: 202004
  5. RANITIDINE. [Suspect]
     Active Substance: RANITIDINE
     Indication: DYSPEPSIA
  6. ZANTAC [Suspect]
     Active Substance: RANITIDINE HYDROCHLORIDE
     Indication: DYSPEPSIA
  7. RANITIDINE. [Suspect]
     Active Substance: RANITIDINE
     Indication: ABDOMINAL DISCOMFORT
  8. RANITIDINE. [Suspect]
     Active Substance: RANITIDINE
     Indication: DYSPEPSIA
  9. RANITIDINE. [Suspect]
     Active Substance: RANITIDINE
     Indication: LACTOSE INTOLERANCE
  10. ZANTAC [Suspect]
     Active Substance: RANITIDINE HYDROCHLORIDE
     Indication: DYSPEPSIA
  11. ZANTAC [Suspect]
     Active Substance: RANITIDINE HYDROCHLORIDE
     Indication: ABDOMINAL DISCOMFORT
  12. ZANTAC [Suspect]
     Active Substance: RANITIDINE HYDROCHLORIDE
     Indication: DYSPEPSIA
     Dosage: 150 MG, 1 OR 2 TIMES DAILY AS NEEDED FROM 1/2000?2/2010 AND THEN 4/2019 ? 4/2020
     Route: 065
     Dates: start: 200001, end: 202004
  13. RANITIDINE. [Suspect]
     Active Substance: RANITIDINE
     Indication: ABDOMINAL DISCOMFORT
  14. ZANTAC [Suspect]
     Active Substance: RANITIDINE HYDROCHLORIDE
     Indication: ABDOMINAL DISCOMFORT
  15. RANITIDINE. [Suspect]
     Active Substance: RANITIDINE
     Indication: DYSPEPSIA
     Dosage: 150 MG, 1 OR 2 TIMES DAILY AS NEEDED FROM 1/2000?2/2010 AND THEN 4/2019 ? 4/2020
     Route: 065
     Dates: start: 200001, end: 202004
  16. RANITIDINE. [Suspect]
     Active Substance: RANITIDINE
     Indication: LACTOSE INTOLERANCE

REACTIONS (1)
  - Breast cancer [Unknown]
